FAERS Safety Report 4364544-3 (Version None)
Quarter: 2004Q2

REPORT INFORMATION
  Report Type: 
  Country: None (occurrence: None)
  Receive Date: 20040525
  Receipt Date: 20030611
  Transmission Date: 20050107
  Serious: Yes (Other)
  Sender: FDA-Public Use
  Company Number: GB-BRISTOL-MYERS SQUIBB COMPANY-12297933

PATIENT
  Age: 72 Year
  Sex: Female
  Weight: 55 kg

DRUGS (4)
  1. IRBESARTAN [Suspect]
     Indication: HYPERTENSION
     Route: 048
     Dates: start: 20030301, end: 20030401
  2. ASPIRIN [Concomitant]
     Route: 048
     Dates: start: 19900101
  3. PREDNISOLONE [Concomitant]
     Route: 048
     Dates: start: 19900101
  4. OMEPRAZOLE [Concomitant]
     Dates: start: 19900101

REACTIONS (1)
  - VASCULITIS [None]
